FAERS Safety Report 17718955 (Version 1)
Quarter: 2020Q2

REPORT INFORMATION
  Report Type: Spontaneous
  Country: FR (occurrence: FR)
  Receive Date: 20200428
  Receipt Date: 20200428
  Transmission Date: 20200714
  Serious: Yes (Hospitalization)
  Sender: FDA-Public Use
  Company Number: FR-ASTRAZENECA-2020SE54746

PATIENT
  Age: 60 Year
  Sex: Female

DRUGS (1)
  1. XEROQUEL LP [Suspect]
     Active Substance: QUETIAPINE FUMARATE
     Indication: MENTAL DISORDER
     Dosage: 2.0DF ONCE/SINGLE ADMINISTRATION
     Route: 048
     Dates: start: 20200404, end: 20200404

REACTIONS (4)
  - Electrocardiogram change [Not Recovered/Not Resolved]
  - Incorrect dose administered [Recovered/Resolved]
  - Somnolence [Not Recovered/Not Resolved]
  - Vomiting [Recovered/Resolved]

NARRATIVE: CASE EVENT DATE: 20200404
